FAERS Safety Report 10057641 (Version 2)
Quarter: 2014Q4

REPORT INFORMATION
  Report Type: Report from Study
  Country: US (occurrence: US)
  Receive Date: 20140404
  Receipt Date: 20141021
  Transmission Date: 20150528
  Serious: Yes (Hospitalization)
  Sender: FDA-Public Use
  Company Number: US-BIOGENIDEC-2014BI029393

PATIENT
  Age: 40 Year
  Sex: Female

DRUGS (1)
  1. TYSABRI [Suspect]
     Active Substance: NATALIZUMAB
     Indication: MULTIPLE SCLEROSIS
     Route: 042
     Dates: start: 20130701, end: 20140124

REACTIONS (4)
  - Oedema peripheral [Not Recovered/Not Resolved]
  - Catheter site injury [Not Recovered/Not Resolved]
  - Thrombosis [Not Recovered/Not Resolved]
  - Infusion site scar [Not Recovered/Not Resolved]

NARRATIVE: CASE EVENT DATE: 20140201
